FAERS Safety Report 10385367 (Version 1)
Quarter: 2014Q3

REPORT INFORMATION
  Report Type: Spontaneous
  Country: US (occurrence: US)
  Receive Date: 20140814
  Receipt Date: 20140814
  Transmission Date: 20150326
  Serious: Yes (Other)
  Sender: FDA-Public Use
  Company Number: US-BAYER-2014-117051

PATIENT
  Age: 72 Year
  Sex: Female

DRUGS (2)
  1. APIXABAN [Concomitant]
     Active Substance: APIXABAN
  2. BETAPACE [Suspect]
     Active Substance: SOTALOL HYDROCHLORIDE
     Indication: ATRIAL FIBRILLATION
     Dosage: 80 MG, BID
     Route: 048
     Dates: start: 201407

REACTIONS (5)
  - Infection [None]
  - Gout [None]
  - Joint swelling [None]
  - Pain [Recovering/Resolving]
  - Musculoskeletal pain [None]

NARRATIVE: CASE EVENT DATE: 20140731
